FAERS Safety Report 4300346-1 (Version None)
Quarter: 2004Q1

REPORT INFORMATION
  Report Type: 
  Country: None (occurrence: None)
  Receive Date: 20040218
  Receipt Date: 20040130
  Transmission Date: 20041129
  Serious: Yes (Other)
  Sender: FDA-Public Use
  Company Number: US_0402100442

PATIENT
  Sex: Male

DRUGS (1)
  1. HUMULIN N [Suspect]

REACTIONS (1)
  - SHOCK HYPOGLYCAEMIC [None]
